FAERS Safety Report 18300427 (Version 1)
Quarter: 2020Q3

REPORT INFORMATION
  Report Type: Spontaneous
  Country: US (occurrence: US)
  Receive Date: 20200923
  Receipt Date: 20200923
  Transmission Date: 20201103
  Serious: Yes (Hospitalization)
  Sender: FDA-Public Use
  Company Number: None

PATIENT
  Age: 72 Year
  Sex: Male

DRUGS (1)
  1. ATORVASTATIN (ATORVASTATIN CA 80MG TAB) [Suspect]
     Active Substance: ATORVASTATIN
     Indication: HYPERLIPIDAEMIA
     Route: 048
     Dates: start: 20160622, end: 20200520

REACTIONS (10)
  - Myoglobin blood increased [None]
  - Alanine aminotransferase increased [None]
  - Myalgia [None]
  - Aspartate aminotransferase increased [None]
  - Arthralgia [None]
  - Myopathy [None]
  - Blood creatine phosphokinase increased [None]
  - Blood creatine phosphokinase MB increased [None]
  - Muscular weakness [None]
  - Hepatic enzyme increased [None]

NARRATIVE: CASE EVENT DATE: 20200520
